FAERS Safety Report 5833370-8 (Version None)
Quarter: 2008Q3

REPORT INFORMATION
  Report Type: 
  Country: None (occurrence: None)
  Receive Date: 20080805
  Receipt Date: 20080728
  Transmission Date: 20090109
  Serious: Yes (Other)
  Sender: FDA-Public Use
  Company Number: PHNU2008DE00693

PATIENT
  Sex: Female
  Weight: 66 kg

DRUGS (3)
  1. CLOZAPINE [Suspect]
     Indication: DELUSIONAL DISORDER, PERSECUTORY TYPE
     Dosage: 300 MG, UNK
     Route: 048
     Dates: start: 20080101, end: 20080122
  2. METFORMIN HCL [Interacting]
     Indication: DIABETES MELLITUS
     Dosage: 100 MG, BID
     Route: 048
  3. METFORMIN HCL [Interacting]
     Dosage: 200 MG, UNK
     Route: 048

REACTIONS (4)
  - ANTIPSYCHOTIC DRUG LEVEL ABOVE THERAPEUTIC [None]
  - DELIRIUM [None]
  - DRUG INTERACTION [None]
  - DRUG LEVEL INCREASED [None]
